FAERS Safety Report 9014896 (Version 2)
Quarter: 2013Q1

REPORT INFORMATION
  Report Type: Spontaneous
  Country: US (occurrence: US)
  Receive Date: 20130116
  Receipt Date: 20130207
  Transmission Date: 20140127
  Serious: No
  Sender: FDA-Public Use
  Company Number: US-BIOGENIDEC-2013BI001784

PATIENT
  Sex: Female

DRUGS (2)
  1. TYSABRI [Suspect]
     Indication: MULTIPLE SCLEROSIS
     Route: 042
     Dates: start: 20120706
  2. LORTAB [Concomitant]
     Indication: POLYARTHRITIS

REACTIONS (3)
  - Catheter site pain [Recovered/Resolved]
  - Central nervous system lesion [Not Recovered/Not Resolved]
  - Memory impairment [Recovered/Resolved]
